FAERS Safety Report 5402398-4 (Version None)
Quarter: 2007Q3

REPORT INFORMATION
  Report Type: 
  Country: None (occurrence: None)
  Receive Date: 20070730
  Receipt Date: 20070730
  Transmission Date: 20080115
  Serious: Yes (Death, Life-Threatening, Hospitalization)
  Sender: FDA-Public Use
  Company Number: None

PATIENT
  Age: 56 Year
  Sex: Female
  Weight: 55.2 kg

DRUGS (17)
  1. CETUXIMAB 500 MG/M2 - BRISTOL MYERS SQUIBB [Suspect]
     Indication: RECTAL CANCER METASTATIC
     Dosage: 900 MG Q2WEEKS INTRAVENOU
     Route: 042
     Dates: start: 20070430
  2. IRINOTECAN HCL [Suspect]
     Indication: RECTAL CANCER METASTATIC
     Dosage: 240 MG Q2WEEKS INTRAVENOU
     Route: 042
     Dates: start: 20070430
  3. DIPHENHYDRAMINE HCL [Concomitant]
  4. PALONOSETRON [Concomitant]
  5. DEXAMETHASONE 0.5MG TAB [Concomitant]
  6. VITAMIN D [Concomitant]
  7. ASCORBIC ACID [Concomitant]
  8. VITAMIN B-12 [Concomitant]
  9. VITAMIN B6 [Concomitant]
  10. NEURONTIN [Concomitant]
  11. IRON [Concomitant]
  12. HYDROCHLOROTHIAZIDE [Concomitant]
  13. DIOVAN [Concomitant]
  14. CARDIZEM [Concomitant]
  15. COMPAZINE [Concomitant]
  16. IMODIUM [Concomitant]
  17. PRE-CHEMOTHERAPY [Concomitant]

REACTIONS (12)
  - ABDOMINAL INFECTION [None]
  - ACUTE RESPIRATORY DISTRESS SYNDROME [None]
  - COAGULOPATHY [None]
  - DECUBITUS ULCER [None]
  - HYPOTENSION [None]
  - HYPOXIA [None]
  - ILEAL PERFORATION [None]
  - ILEORECTAL FISTULA [None]
  - MYOCARDIAL INFARCTION [None]
  - PERITONITIS [None]
  - RENAL FAILURE ACUTE [None]
  - WOUND INFECTION [None]
